FAERS Safety Report 9613076 (Version 3)
Quarter: 2013Q4

REPORT INFORMATION
  Report Type: Spontaneous
  Country: IT (occurrence: IT)
  Receive Date: 20131010
  Receipt Date: 20131030
  Transmission Date: 20140711
  Serious: Yes (Other)
  Sender: FDA-Public Use
  Company Number: PHHY2013IT113686

PATIENT
  Age: 76 Year
  Sex: Male

DRUGS (5)
  1. ZOMETA [Suspect]
     Indication: METASTASES TO BONE
     Dosage: 4 MG, MONTHLY
     Route: 042
     Dates: start: 20110601, end: 20130801
  2. ENANTONE [Concomitant]
     Dosage: 1 DF, POWDER AND SOLVENT FOR INJECTABLE SUSPENSION EVERY 12 WEEKS
  3. BISPHOSPHONATES [Concomitant]
     Dosage: UNK UKN, UNK
  4. METRONIDAZOLE [Concomitant]
     Dosage: UNK UKN, UNK
  5. AMOXICILLIN [Concomitant]
     Dosage: UNK UKN, UNK

REACTIONS (3)
  - Osteonecrosis of jaw [Unknown]
  - Osteitis [Unknown]
  - Jaw disorder [Unknown]
